FAERS Safety Report 19485894 (Version 2)
Quarter: 2021Q3

REPORT INFORMATION
  Report Type: Spontaneous
  Country: ES (occurrence: ES)
  Receive Date: 20210702
  Receipt Date: 20210825
  Transmission Date: 20211014
  Serious: Yes (Hospitalization, Other)
  Sender: FDA-Public Use
  Company Number: ES-PFIZER INC-2021691189

PATIENT
  Age: 57 Year
  Sex: Male

DRUGS (1)
  1. PACLITAXEL. [Suspect]
     Active Substance: PACLITAXEL
     Indication: BREAST CANCER RECURRENT
     Dosage: UNK, CYCLIC (SIX CYCLES OF WEEKLY NEOADJUVANT CHEMOTHERAPY)

REACTIONS (4)
  - Neutropenic colitis [Recovered/Resolved]
  - Drug eruption [Recovered/Resolved]
  - Dermatomyositis [Recovered/Resolved]
  - Skin toxicity [Recovered/Resolved]
